FAERS Safety Report 9682200 (Version 1)
Quarter: 2013Q4

REPORT INFORMATION
  Report Type: Spontaneous
  Country: US (occurrence: US)
  Receive Date: 20131111
  Receipt Date: 20131111
  Transmission Date: 20140711
  Serious: No
  Sender: FDA-Public Use
  Company Number: US-009507513-1310USA013983

PATIENT
  Sex: Female

DRUGS (1)
  1. EMEND [Suspect]
     Dosage: A DOSE OF 125 MG, TODAY
     Route: 042
     Dates: start: 20131028

REACTIONS (2)
  - Medical device complication [Unknown]
  - No adverse event [Unknown]
